FAERS Safety Report 4414650-X (Version None)
Quarter: 2004Q3

REPORT INFORMATION
  Report Type: 
  Country: None (occurrence: None)
  Receive Date: 20040804
  Receipt Date: 20040728
  Transmission Date: 20050211
  Serious: Yes (Disabling)
  Sender: FDA-Public Use
  Company Number: GB-MERCK-0407GBR00295

PATIENT
  Age: 81 Year
  Sex: Female

DRUGS (3)
  1. [THERAPY UNSPECIFIED] [Concomitant]
     Route: 065
  2. ZETIA [Suspect]
     Route: 048
  3. WARFARIN [Concomitant]
     Route: 065

REACTIONS (1)
  - MOBILITY DECREASED [None]
